FAERS Safety Report 9795481 (Version 1)
Quarter: 2014Q1

REPORT INFORMATION
  Report Type: Spontaneous
  Country: IT (occurrence: IT)
  Receive Date: 20140103
  Receipt Date: 20140103
  Transmission Date: 20141002
  Serious: Yes (Hospitalization)
  Sender: FDA-Public Use
  Company Number: IT-MYLANLABS-2013S1028823

PATIENT
  Age: 76 Year
  Sex: Female
  Weight: 0 kg

DRUGS (7)
  1. LEVOFLOXACIN [Suspect]
     Indication: RESPIRATORY DISORDER
     Dosage: 500 MG DAILY
     Route: 048
     Dates: start: 20131121, end: 20131124
  2. COUMADIN [Concomitant]
     Indication: PRODUCT USED FOR UNKNOWN INDICATION
  3. LANITOP [Concomitant]
     Indication: PRODUCT USED FOR UNKNOWN INDICATION
  4. LASITONE [Concomitant]
     Indication: PRODUCT USED FOR UNKNOWN INDICATION
  5. PANTOPAN [Concomitant]
     Indication: PRODUCT USED FOR UNKNOWN INDICATION
  6. CLENIL /00212602/ [Concomitant]
     Indication: PRODUCT USED FOR UNKNOWN INDICATION
  7. FLUIBRON [Concomitant]
     Indication: PRODUCT USED FOR UNKNOWN INDICATION

REACTIONS (4)
  - Hallucination, auditory [Recovering/Resolving]
  - Hallucination, visual [Recovering/Resolving]
  - Hyperhidrosis [Recovering/Resolving]
  - Tremor [Recovering/Resolving]
